FAERS Safety Report 7908767-2 (Version None)
Quarter: 2011Q4

REPORT INFORMATION
  Report Type: 
  Country: None (occurrence: None)
  Receive Date: 20111111
  Receipt Date: 20111108
  Transmission Date: 20120403
  Serious: No
  Sender: FDA-Public Use
  Company Number: US-PFIZER INC-2011273635

PATIENT
  Sex: Female
  Weight: 58.957 kg

DRUGS (4)
  1. PRISTIQ [Suspect]
     Indication: DEPRESSION
     Dosage: 50 MG, 1X/DAY
     Route: 048
     Dates: start: 20111107, end: 20111108
  2. KLONOPIN [Concomitant]
     Dosage: UNK
  3. PRISTIQ [Suspect]
     Indication: ANXIETY
  4. BUSPAR [Suspect]
     Indication: ANXIETY
     Dosage: 30 MG, 2X/DAY
     Route: 048
     Dates: start: 20110801

REACTIONS (5)
  - ABDOMINAL DISCOMFORT [None]
  - MALAISE [None]
  - DIARRHOEA [None]
  - HEADACHE [None]
  - INSOMNIA [None]
